FAERS Safety Report 23134796 (Version 1)
Quarter: 2023Q4

REPORT INFORMATION
  Report Type: Report from Study
  Country: US (occurrence: None)
  Receive Date: 20231101
  Receipt Date: 20231101
  Transmission Date: 20240109
  Serious: Yes (Hospitalization, Other)
  Sender: FDA-Public Use
  Company Number: 2023A242106

PATIENT

DRUGS (1)
  1. BRILINTA [Suspect]
     Active Substance: TICAGRELOR
     Route: 048

REACTIONS (6)
  - Chest discomfort [Unknown]
  - Product dose omission issue [Unknown]
  - Syncope [Unknown]
  - Arterial occlusive disease [Unknown]
  - Weight increased [Unknown]
  - Blood cholesterol increased [Unknown]
